FAERS Safety Report 5110309-4 (Version None)
Quarter: 2006Q3

REPORT INFORMATION
  Report Type: 
  Country: None (occurrence: None)
  Receive Date: 20060915
  Receipt Date: 20060901
  Transmission Date: 20061208
  Serious: No
  Sender: FDA-Public Use
  Company Number: 36238

PATIENT
  Age: 46 Year
  Sex: Male

DRUGS (12)
  1. ISOPTO CARPINE 2% [Suspect]
     Dosage: OPHT
     Route: 047
  2. CLORAZEPATE DIPOTASSIUM [Concomitant]
  3. TROPICAMIDE [Concomitant]
  4. MYDFRIN [Concomitant]
  5. OXIBUPROCAINE [Concomitant]
  6. TETRACAINE HYDROCHLORIDE [Concomitant]
  7. LIDOCAINE [Concomitant]
  8. HYDROXYPROPYLMETHYLCELLULOSE [Concomitant]
  9. BALANCED SALT SOLUTION [Concomitant]
  10. ACETYLCHOLINE CHLORIDE [Concomitant]
  11. CIPROFLOXACIN HCL [Concomitant]
  12. DEXAMETHASONE TAB [Concomitant]

REACTIONS (2)
  - CATARACT [None]
  - POSTERIOR SEGMENT OF EYE ANOMALY [None]
